FAERS Safety Report 16820709 (Version 1)
Quarter: 2019Q3

REPORT INFORMATION
  Report Type: Report from Study
  Country: None (occurrence: US)
  Receive Date: 20190918
  Receipt Date: 20190918
  Transmission Date: 20191005
  Serious: Yes (Other)
  Sender: FDA-Public Use
  Company Number: US-ABBVIE-19K-163-2924332-00

PATIENT
  Age: 41 Year
  Sex: Female

DRUGS (3)
  1. HUMIRA [Suspect]
     Active Substance: ADALIMUMAB
     Indication: CROHN^S DISEASE
     Route: 058
  2. HUMIRA [Suspect]
     Active Substance: ADALIMUMAB
     Indication: RHEUMATOID ARTHRITIS
  3. HUMIRA [Suspect]
     Active Substance: ADALIMUMAB
     Indication: HIDRADENITIS

REACTIONS (8)
  - Erythema [Unknown]
  - Craniocerebral injury [Unknown]
  - Inflammation [Unknown]
  - Gastrointestinal scarring [Unknown]
  - Crohn^s disease [Unknown]
  - Pruritus [Unknown]
  - Road traffic accident [Unknown]
  - Hidradenitis [Unknown]

NARRATIVE: CASE EVENT DATE: 201810
